FAERS Safety Report 12984163 (Version 6)
Quarter: 2017Q4

REPORT INFORMATION
  Report Type: Spontaneous
  Country: TR (occurrence: TR)
  Receive Date: 20161129
  Receipt Date: 20171025
  Transmission Date: 20180320
  Serious: Yes (Other)
  Sender: FDA-Public Use
  Company Number: TR-PFIZER INC-2016546185

PATIENT
  Age: 50 Year
  Sex: Female

DRUGS (2)
  1. METHOTREXATE SODIUM. [Interacting]
     Active Substance: METHOTREXATE SODIUM
     Dosage: 2.5 MG, DAILY (TOTAL 17.5 MG/WEEK)
     Route: 048
  2. METHOTREXATE SODIUM. [Suspect]
     Active Substance: METHOTREXATE SODIUM
     Indication: PSORIASIS
     Dosage: 15 MG, WEEKLY
     Route: 048

REACTIONS (7)
  - Toxicity to various agents [Unknown]
  - Leukopenia [Recovered/Resolved]
  - Food interaction [Recovered/Resolved]
  - Thrombocytopenia [Recovered/Resolved]
  - Skin ulcer [Recovered/Resolved]
  - Purulence [Recovered/Resolved]
  - Mouth ulceration [Recovered/Resolved]
